FAERS Safety Report 12385506 (Version 2)
Quarter: 2016Q2

REPORT INFORMATION
  Report Type: Spontaneous
  Country: JP (occurrence: JP)
  Receive Date: 20160519
  Receipt Date: 20160603
  Transmission Date: 20160815
  Serious: Yes (Other)
  Sender: FDA-Public Use
  Company Number: JP-BAYER-2016-096685

PATIENT
  Age: 44 Year
  Sex: Female
  Weight: 45 kg

DRUGS (1)
  1. YAZ [Suspect]
     Active Substance: DROSPIRENONE\ETHINYL ESTRADIOL
     Indication: TUMOUR EXCISION
     Dosage: UNK
     Route: 048
     Dates: end: 20160518

REACTIONS (4)
  - Colitis ischaemic [Recovering/Resolving]
  - Off label use [None]
  - Red blood cell count decreased [None]
  - Lower gastrointestinal haemorrhage [Recovering/Resolving]

NARRATIVE: CASE EVENT DATE: 20160517
